FAERS Safety Report 13432833 (Version 2)
Quarter: 2018Q1

REPORT INFORMATION
  Report Type: Report from Study
  Country: CA (occurrence: CA)
  Receive Date: 20170412
  Receipt Date: 20180314
  Transmission Date: 20180508
  Serious: Yes (Hospitalization, Other)
  Sender: FDA-Public Use
  Company Number: CA-TOLMAR, INC.-2017CA004377

PATIENT

DRUGS (1)
  1. ELIGARD [Suspect]
     Active Substance: LEUPROLIDE ACETATE
     Indication: PROSTATE CANCER
     Dosage: 22.5 MG, Q3MONTHS
     Route: 058
     Dates: start: 20140331

REACTIONS (3)
  - Nocturia [Recovering/Resolving]
  - Calculus bladder [Recovering/Resolving]
  - Pollakiuria [Recovered/Resolved]

NARRATIVE: CASE EVENT DATE: 20171215
